FAERS Safety Report 13320429 (Version 1)
Quarter: 2017Q1

REPORT INFORMATION
  Report Type: Spontaneous
  Country: CA (occurrence: CA)
  Receive Date: 20170309
  Receipt Date: 20170309
  Transmission Date: 20170428
  Serious: Yes (Other)
  Sender: FDA-Public Use
  Company Number: CA-TEVA-747703ACC

PATIENT
  Age: 32 Year
  Sex: Female
  Weight: 59.93 kg

DRUGS (1)
  1. VALSARTAN. [Suspect]
     Active Substance: VALSARTAN
     Indication: HYPERTENSION
     Route: 048

REACTIONS (3)
  - Pharyngeal oedema [Recovered/Resolved]
  - Dysphagia [Recovered/Resolved]
  - Urine odour abnormal [Recovered/Resolved]
